FAERS Safety Report 8337279-X (Version None)
Quarter: 2012Q2

REPORT INFORMATION
  Report Type: 
  Country: None (occurrence: None)
  Receive Date: 20120504
  Receipt Date: 20120424
  Transmission Date: 20120825
  Serious: Yes (Other)
  Sender: FDA-Public Use
  Company Number: US-PERRIGO-12US003582

PATIENT
  Sex: Female
  Weight: 7.256 kg

DRUGS (1)
  1. DIPHENHYDRAMINE HCL [Suspect]
     Indication: ACCIDENTAL DRUG INTAKE BY CHILD
     Dosage: UNK, ONCE
     Route: 048
     Dates: start: 20120423, end: 20120423

REACTIONS (2)
  - NO ADVERSE EVENT [None]
  - ACCIDENTAL DRUG INTAKE BY CHILD [None]
